FAERS Safety Report 9839322 (Version 1)
Quarter: 2014Q1

REPORT INFORMATION
  Report Type: Spontaneous
  Country: JP (occurrence: JP)
  Receive Date: 20140123
  Receipt Date: 20140123
  Transmission Date: 20141002
  Serious: Yes (Other)
  Sender: FDA-Public Use
  Company Number: JP-MERCK-1401JPN010203

PATIENT
  Sex: Female

DRUGS (8)
  1. REFLEX [Suspect]
     Indication: DEPRESSION
     Dosage: 1 TABLET, QD
     Route: 048
  2. REFLEX [Suspect]
     Dosage: 2 TABLET, IN THE MORNING
     Route: 048
  3. REFLEX [Suspect]
     Dosage: 2 TABLET, AT BEDTIME
     Route: 048
  4. AMLODIPINE BESYLATE [Suspect]
     Route: 048
  5. CLOTIAZEPAM [Concomitant]
     Route: 048
  6. ETHYL LOFLAZEPATE [Concomitant]
     Route: 048
  7. PITAVASTATIN CALCIUM [Concomitant]
     Route: 048
  8. FEBUXOSTAT [Concomitant]
     Route: 048

REACTIONS (3)
  - Suicidal ideation [Recovering/Resolving]
  - Depression [Recovering/Resolving]
  - Sedation [Recovering/Resolving]
